FAERS Safety Report 21104527 (Version 2)
Quarter: 2022Q3

REPORT INFORMATION
  Report Type: Report from Study
  Country: FR (occurrence: None)
  Receive Date: 20220720
  Receipt Date: 20220804
  Transmission Date: 20221027
  Serious: Yes (Hospitalization)
  Sender: FDA-Public Use
  Company Number: FR-ROCHE-3136234

PATIENT
  Age: 75 Year
  Sex: Male
  Weight: 79 kg

DRUGS (5)
  1. TRASTUZUMAB [Suspect]
     Active Substance: TRASTUZUMAB
     Indication: HER2 positive gastric cancer
     Route: 041
     Dates: start: 20201116, end: 20211227
  2. FLUOROURACIL [Suspect]
     Active Substance: FLUOROURACIL
     Indication: HER2 positive gastric cancer
     Dosage: 3 WEEKLY SCHEDULE AT THE RATE OF 800MG/M2/DAY AND 2 WEEKLY 400 MG/M2 ON DAY 1, THEN 1200 MG/M2/D AND
     Route: 042
     Dates: start: 20201116, end: 20210510
  3. DOCETAXEL [Suspect]
     Active Substance: DOCETAXEL
     Indication: HER2 positive gastric cancer
     Route: 042
     Dates: start: 20201116, end: 20210510
  4. OXALIPLATIN [Suspect]
     Active Substance: OXALIPLATIN
     Indication: HER2 positive gastric cancer
     Dosage: 130 MG/M3 TWICE DAILY ON D-1 -15 IN 3 WEEKLY THEN 2 WEEK
     Route: 042
     Dates: start: 20201116, end: 20210510
  5. LEUCOVORIN [Suspect]
     Active Substance: LEUCOVORIN
     Indication: HER2 positive gastric cancer
     Route: 042
     Dates: start: 20201116, end: 20210510

REACTIONS (1)
  - Diaphragmatic disorder [Recovered/Resolved]

NARRATIVE: CASE EVENT DATE: 20220207
